FAERS Safety Report 14163536 (Version 2)
Quarter: 2017Q4

REPORT INFORMATION
  Report Type: Not Available
  Country: CA (occurrence: CA)
  Receive Date: 20171107
  Receipt Date: 20171120
  Transmission Date: 20180321
  Serious: Yes (Other)
  Sender: FDA-Public Use
  Company Number: CA-ALKABELLO-2017AA003613

PATIENT
  Age: 1 Year

DRUGS (2)
  1. DAE BULK (703) GALLUS GALLUS (EGG WHITE) [Suspect]
     Active Substance: EGG WHITE
  2. DAE BULK (703) GALLUS GALLUS (EGG WHITE) [Suspect]
     Active Substance: EGG WHITE

REACTIONS (1)
  - False negative investigation result [Unknown]
